FAERS Safety Report 6332148-9 (Version None)
Quarter: 2009Q3

REPORT INFORMATION
  Report Type: 
  Country: None (occurrence: None)
  Receive Date: 20090827
  Receipt Date: 20090827
  Transmission Date: 20100115
  Serious: Yes (Hospitalization)
  Sender: FDA-Public Use
  Company Number: None

PATIENT
  Sex: Male
  Weight: 84 kg

DRUGS (4)
  1. FLUOROURACIL [Suspect]
     Dosage: 5272 MG
     Dates: end: 20090813
  2. BEVACIZUMAB (RHUMAB VEGF) [Suspect]
     Dosage: 420 MG
     Dates: end: 20090811
  3. LEUCOVORIN CALCIUM [Suspect]
     Dosage: 812 MG
     Dates: end: 20090811
  4. ELOXATIN [Suspect]
     Dosage: 173 MG
     Dates: end: 20090811

REACTIONS (5)
  - BLOOD PRESSURE DECREASED [None]
  - DEHYDRATION [None]
  - GASTROENTERITIS [None]
  - HYPOVOLAEMIA [None]
  - ILEUS PARALYTIC [None]
